FAERS Safety Report 10686382 (Version 2)
Quarter: 2014Q4

REPORT INFORMATION
  Report Type: Spontaneous
  Country: ES (occurrence: ES)
  Receive Date: 20141231
  Receipt Date: 20141231
  Transmission Date: 20150529
  Serious: Yes (Death, Other)
  Sender: FDA-Public Use
  Company Number: ES-CELGENE-144-21660-13110650

PATIENT
  Age: 47 Year
  Sex: Female

DRUGS (1)
  1. ABRAXANE [Suspect]
     Active Substance: PACLITAXEL
     Indication: BREAST CANCER METASTATIC
     Route: 065
     Dates: start: 201306

REACTIONS (6)
  - Pleural effusion [Unknown]
  - Atelectasis [Unknown]
  - Mucosal inflammation [Unknown]
  - Thrombocytopenia [Unknown]
  - Febrile neutropenia [Fatal]
  - Respiratory failure [Unknown]

NARRATIVE: CASE EVENT DATE: 201307
